FAERS Safety Report 4619406-0 (Version None)
Quarter: 2005Q2

REPORT INFORMATION
  Report Type: 
  Country: None (occurrence: None)
  Receive Date: 20050315
  Receipt Date: 20040320
  Transmission Date: 20051028
  Serious: Yes (Hospitalization, Other)
  Sender: FDA-Public Use
  Company Number: HQWYE959330DEC03

PATIENT
  Age: 34 Year
  Sex: Female
  Weight: 58.11 kg

DRUGS (3)
  1. LO/OVRAL [Suspect]
     Indication: ENDOMETRIOSIS
     Dosage: 1 TABLET DAILY, ORAL
     Route: 048
     Dates: start: 19951121, end: 20031101
  2. LO/OVRAL [Suspect]
     Indication: PELVIC PAIN
     Dosage: 1 TABLET DAILY, ORAL
     Route: 048
     Dates: start: 19951121, end: 20031101
  3. LEXAPRO [Concomitant]

REACTIONS (1)
  - ADENOCARCINOMA OF THE CERVIX [None]
